FAERS Safety Report 16543677 (Version 1)
Quarter: 2019Q3

REPORT INFORMATION
  Report Type: Spontaneous
  Country: KW (occurrence: KW)
  Receive Date: 20190709
  Receipt Date: 20190709
  Transmission Date: 20191004
  Serious: Yes (Death)
  Sender: FDA-Public Use
  Company Number: KW-ORPHAN EUROPE-2070520

PATIENT
  Sex: Male

DRUGS (1)
  1. CARBAGLU [Suspect]
     Active Substance: CARGLUMIC ACID
     Indication: HYPERGLYCINAEMIA
     Route: 048

REACTIONS (3)
  - Septic shock [Fatal]
  - Vascular device infection [Fatal]
  - Metabolic disorder [Fatal]

NARRATIVE: CASE EVENT DATE: 20190608
